FAERS Safety Report 11119278 (Version 3)
Quarter: 2016Q1

REPORT INFORMATION
  Report Type: Spontaneous
  Country: US (occurrence: US)
  Receive Date: 20150518
  Receipt Date: 20160208
  Transmission Date: 20160525
  Serious: No
  Sender: FDA-Public Use
  Company Number: US-PFIZER INC-2015165667

PATIENT
  Age: 68 Year
  Sex: Male

DRUGS (23)
  1. WELLBUTRIN [Suspect]
     Active Substance: BUPROPION HYDROCHLORIDE
     Dosage: UNK
  2. LIPITOR [Concomitant]
     Active Substance: ATORVASTATIN CALCIUM
     Dosage: 10 MG, 1X/DAY
     Route: 048
     Dates: start: 20150521
  3. PRIMIDONE. [Concomitant]
     Active Substance: PRIMIDONE
     Dosage: 50 MG TABLET 2 TABLETS 3 TIMES A DAY
     Route: 048
     Dates: start: 20150416
  4. PROSCAR [Concomitant]
     Active Substance: FINASTERIDE
     Dosage: 5 MG, DAILY
     Route: 048
     Dates: start: 20150218
  5. VITAMIN D3 [Concomitant]
     Active Substance: CHOLECALCIFEROL
     Dosage: 1,000 UNIT TABLET: TAKE 1 TABLET(S) TWICE A DAY
     Route: 048
     Dates: start: 20141027
  6. PROAIR HFA [Concomitant]
     Active Substance: ALBUTEROL SULFATE
     Indication: DYSPNOEA
     Dosage: TWO PUFFS EVERY 6 HOURS
     Dates: start: 20141229
  7. FLOMAX [Concomitant]
     Active Substance: TAMSULOSIN HYDROCHLORIDE
     Dosage: 0.4 MG CAPSULE TAKE 2 CAPSULE (S) EVERY DAY AT BEDTIME
     Route: 048
     Dates: start: 20150330
  8. FORTEO [Concomitant]
     Active Substance: TERIPARATIDE
     Dosage: 0.08 ML, 1X/DAY
     Route: 058
     Dates: start: 20141027
  9. HYDROCODONE/ACETAMINOPHEN [Concomitant]
     Active Substance: ACETAMINOPHEN\HYDROCODONE
     Dosage: 1 DF, 4X/DAY
     Route: 048
     Dates: start: 20150508
  10. LYRICA [Concomitant]
     Active Substance: PREGABALIN
     Dosage: 150 MG, 3X/DAY (TAKE 1 CAPSULE(S) 3 TIMES A DAY)
     Route: 048
     Dates: start: 20150507
  11. MIRALAX [Concomitant]
     Active Substance: POLYETHYLENE GLYCOL 3350
     Dosage: 17 G DAILY; AS NEEDED
     Route: 048
     Dates: start: 20141027
  12. CHANTIX [Suspect]
     Active Substance: VARENICLINE TARTRATE
     Indication: SMOKING CESSATION THERAPY
     Dosage: 1 MG, 2X/DAY
     Route: 048
  13. TRAMADOL. [Suspect]
     Active Substance: TRAMADOL
     Dosage: UNK
  14. OCUVITE [Concomitant]
     Active Substance: VITAMINS
     Dosage: UNK (ASCORBIC ACID 150MG, RETINOL5MG, TOCOPHEROL150MG)
     Route: 048
     Dates: start: 20141027
  15. ACIDOPHILUS [Concomitant]
     Active Substance: LACTOBACILLUS ACIDOPHILUS
     Dosage: 2 DF, DAILY
     Route: 048
     Dates: start: 20141027
  16. TAMSULOSIN [Concomitant]
     Active Substance: TAMSULOSIN
     Dosage: 0.8 MG, 1X/DAY (0.4 MG, TAKE 2 CAPSULES DAILY AT BEDTIME)
     Route: 048
  17. VENTOLIN HFA [Concomitant]
     Active Substance: ALBUTEROL SULFATE
     Indication: DYSPNOEA
     Dosage: UNK, AS NEEDED (90 MCG/ACTUATION AEROSOL, INHALE 2 PUFFS EVERY 6 HOURS AS NEEDED)
  18. ASA [Concomitant]
     Active Substance: ASPIRIN
     Dosage: 81 MG, 1X/DAY
     Route: 048
  19. BENADRYL [Concomitant]
     Active Substance: DIPHENHYDRAMINE HYDROCHLORIDE
     Dosage: ONE DAILY IN MORNING AND ONE AS NEEDED AT BEDTIME
     Dates: start: 20141121
  20. MAGNESIUM OXIDE. [Concomitant]
     Active Substance: MAGNESIUM OXIDE
     Dosage: 400 MG, 1X/DAY
     Route: 048
     Dates: start: 20141027
  21. ATENOLOL. [Concomitant]
     Active Substance: ATENOLOL
     Dosage: 25 MG, 1X/DAY
     Route: 048
  22. CALCIUM 600 PLUS VITAMIN D3 [Concomitant]
     Dosage: 1 DF, 2X/DAY
     Route: 048
     Dates: start: 20141027
  23. LOSARTAN. [Concomitant]
     Active Substance: LOSARTAN
     Dosage: 25 MG, 1X/DAY
     Route: 048
     Dates: start: 20150223

REACTIONS (2)
  - Nightmare [Recovered/Resolved]
  - Drug hypersensitivity [Unknown]
